FAERS Safety Report 23867633 (Version 2)
Quarter: 2024Q2

REPORT INFORMATION
  Report Type: Spontaneous
  Country: LV (occurrence: LV)
  Receive Date: 20240517
  Receipt Date: 20240528
  Transmission Date: 20240716
  Serious: Yes (Other)
  Sender: FDA-Public Use
  Company Number: LV-PFIZER INC-PV202400063924

PATIENT
  Age: 78 Year
  Sex: Female

DRUGS (3)
  1. OXALIPLATIN [Suspect]
     Active Substance: OXALIPLATIN
     Indication: Chemotherapy
     Dosage: UNK, CYCLIC (6TH CHEMOTHERAPY CYCLE)
  2. FLUOROURACIL [Suspect]
     Active Substance: FLUOROURACIL
     Indication: Chemotherapy
     Dosage: UNK, CYCLIC (6TH CHEMOTHERAPY CYCLE)
  3. LEUCOVORIN [Suspect]
     Active Substance: LEUCOVORIN\LEUCOVORIN CALCIUM
     Indication: Chemotherapy
     Dosage: UNK, CYCLIC (6TH CHEMOTHERAPY CYCLE)

REACTIONS (1)
  - Embolism venous [Unknown]
